FAERS Safety Report 4528164-X (Version None)
Quarter: 2004Q4

REPORT INFORMATION
  Report Type: 
  Country: None (occurrence: None)
  Receive Date: 20041215
  Receipt Date: 20040312
  Transmission Date: 20050328
  Serious: Yes (Death)
  Sender: FDA-Public Use
  Company Number: US-MERCK-0403USA01230

PATIENT
  Age: 79 Year
  Sex: Female
  Weight: 48 kg

DRUGS (8)
  1. VIOXX [Suspect]
     Indication: RHEUMATOID ARTHRITIS
     Route: 048
     Dates: start: 20000101, end: 20020308
  2. LOTENSIN [Concomitant]
     Indication: HYPERTENSION
     Route: 065
     Dates: start: 19800101, end: 20020101
  3. VASOTEC [Concomitant]
     Indication: HYPERTENSION
     Route: 048
     Dates: start: 19800101, end: 20020101
  4. TENORMIN [Concomitant]
     Indication: HYPERTENSION
     Route: 065
     Dates: start: 19800101, end: 20020101
  5. TOPROL-XL [Concomitant]
     Indication: HYPERTENSION
     Route: 065
     Dates: start: 19800101, end: 20020101
  6. PROCARDIA [Concomitant]
     Indication: HYPERTENSION
     Route: 065
     Dates: start: 19800101, end: 20020101
  7. CARDIZEM [Concomitant]
     Indication: HYPERTENSION
     Route: 065
     Dates: start: 19800101, end: 20020101
  8. HYTRIN [Concomitant]
     Indication: HYPERTENSION
     Route: 065
     Dates: start: 19800101, end: 20020101

REACTIONS (13)
  - ADVERSE EVENT [None]
  - CARDIAC DISORDER [None]
  - CIRCULATORY COLLAPSE [None]
  - DERMATITIS [None]
  - ELECTROMECHANICAL DISSOCIATION [None]
  - EXSANGUINATION [None]
  - HAEMATEMESIS [None]
  - MALAISE [None]
  - OESOPHAGEAL RUPTURE [None]
  - OESOPHAGEAL VARICES HAEMORRHAGE [None]
  - OSTEOARTHRITIS [None]
  - UPPER GASTROINTESTINAL HAEMORRHAGE [None]
  - VERTIGO POSITIONAL [None]
